FAERS Safety Report 18020217 (Version 2)
Quarter: 2020Q3

REPORT INFORMATION
  Report Type: Spontaneous
  Country: TR (occurrence: TR)
  Receive Date: 20200714
  Receipt Date: 20200722
  Transmission Date: 20201103
  Serious: Yes (Other)
  Sender: FDA-Public Use
  Company Number: TR-GLAXOSMITHKLINE-TR2020TRK122458

PATIENT
  Sex: Male

DRUGS (2)
  1. REQUIP XL [Suspect]
     Active Substance: ROPINIROLE HYDROCHLORIDE
     Dosage: 2 MG, QD (1 TABLET IN EVENING)
     Dates: start: 20200212
  2. REQUIP XL [Suspect]
     Active Substance: ROPINIROLE HYDROCHLORIDE
     Indication: PARKINSON^S DISEASE
     Dosage: 4 MG, Z (2 TABLET IN MORNING AND 1 TABLET IN EVENING)
     Dates: start: 20200212

REACTIONS (5)
  - Tremor [Recovered/Resolved]
  - Hyperhidrosis [Not Recovered/Not Resolved]
  - Diabetes mellitus [Unknown]
  - Product dose omission issue [Unknown]
  - Product availability issue [Unknown]
